FAERS Safety Report 16902495 (Version 1)
Quarter: 2019Q4

REPORT INFORMATION
  Report Type: Spontaneous
  Country: CA (occurrence: CA)
  Receive Date: 20191010
  Receipt Date: 20191010
  Transmission Date: 20200122
  Serious: Yes (Life-Threatening)
  Sender: FDA-Public Use
  Company Number: CA-PFIZER INC-2019438225

PATIENT
  Age: 68 Year
  Sex: Male
  Weight: 65.76 kg

DRUGS (2)
  1. ATORVASTATIN CALCIUM. [Suspect]
     Active Substance: ATORVASTATIN CALCIUM
     Indication: CORONARY ARTERY DISEASE
     Dosage: 10 MG, 1X/DAY
     Route: 048
  2. ATORVASTATIN CALCIUM. [Suspect]
     Active Substance: ATORVASTATIN CALCIUM
     Indication: CARDIOVASCULAR EVENT PROPHYLAXIS

REACTIONS (4)
  - Angioedema [Recovered/Resolved]
  - Vomiting [Recovered/Resolved]
  - Urticaria [Recovered/Resolved]
  - Product substitution issue [Recovered/Resolved]
